FAERS Safety Report 8418526 (Version 2)
Quarter: 2012Q4

REPORT INFORMATION
  Report Type: 
  Country: JP (occurrence: JP)
  Receive Date: 20120221
  Receipt Date: 20121019
  Transmission Date: 20130627
  Serious: Yes (Other)
  Sender: FDA-Public Use
  Company Number: JP-ROCHE-781545

PATIENT

DRUGS (5)
  1. BEVACIZUMAB [Suspect]
     Indication: COLORECTAL CANCER METASTATIC
     Dosage: 2-7 COURSES.
     Route: 065
  2. OXALIPLATIN [Suspect]
     Indication: COLORECTAL CANCER METASTATIC
     Dosage: 1-8 COURSES.
     Route: 065
  3. FOLINIC ACID [Suspect]
     Indication: COLORECTAL CANCER METASTATIC
     Dosage: 1-8 COURSES
     Route: 065
  4. 5-FLUOROURACIL [Suspect]
     Indication: COLORECTAL CANCER METASTATIC
     Dosage: BOLUS
     Route: 042
  5. 5-FLUOROURACIL [Suspect]
     Dosage: CONTINUOUS INFUSION FOR 46 HOURS. 1-8 COURSES.
     Route: 042

REACTIONS (7)
  - Neutropenia [Unknown]
  - Peripheral sensory neuropathy [Unknown]
  - Cerebral infarction [Unknown]
  - Leukopenia [Unknown]
  - Anaemia [Unknown]
  - Embolism arterial [Unknown]
  - Renal failure [Unknown]
